FAERS Safety Report 26179319 (Version 1)
Quarter: 2025Q4

REPORT INFORMATION
  Report Type: Report from Study
  Country: EU (occurrence: EU)
  Receive Date: 20251219
  Receipt Date: 20251219
  Transmission Date: 20260118
  Serious: Yes (Other)
  Sender: TAKEDA
  Company Number: EU-TAKEDA-2025TUS112656

PATIENT
  Age: 34 Year
  Sex: Female
  Weight: 60 kg

DRUGS (1)
  1. LANADELUMAB [Suspect]
     Active Substance: LANADELUMAB
     Indication: Hereditary angioedema
     Dosage: UNK, Q4WEEKS
     Dates: start: 20231019

REACTIONS (1)
  - Autoimmune hypothyroidism [Not Recovered/Not Resolved]

NARRATIVE: CASE EVENT DATE: 20250501
